FAERS Safety Report 5105188-5 (Version None)
Quarter: 2006Q3

REPORT INFORMATION
  Report Type: 
  Country: None (occurrence: None)
  Receive Date: 20060911
  Receipt Date: 20060830
  Transmission Date: 20061208
  Serious: Yes (Hospitalization)
  Sender: FDA-Public Use
  Company Number: 229308

PATIENT
  Age: 43 Year
  Sex: Male

DRUGS (3)
  1. RAPTIVA [Suspect]
     Indication: PSORIASIS
     Dosage: 125 MG, 1 WEEK
     Dates: start: 20060301
  2. ZOCOR [Concomitant]
  3. LISINOPRIL [Concomitant]

REACTIONS (5)
  - BLOOD CREATININE INCREASED [None]
  - BLOOD UREA INCREASED [None]
  - CONDITION AGGRAVATED [None]
  - OEDEMA PERIPHERAL [None]
  - PSORIASIS [None]
